FAERS Safety Report 23847358 (Version 1)
Quarter: 2024Q2

REPORT INFORMATION
  Report Type: Spontaneous
  Country: CA (occurrence: CA)
  Receive Date: 20240513
  Receipt Date: 20240513
  Transmission Date: 20240716
  Serious: Yes (Hospitalization, Other)
  Sender: FDA-Public Use
  Company Number: None

PATIENT
  Age: 41 Year
  Sex: Female

DRUGS (10)
  1. CLONAZEPAM [Interacting]
     Active Substance: CLONAZEPAM
     Indication: Insomnia
     Dosage: 1 DF, DAILY?DAILY DOSE: 1
     Route: 048
  2. CLONAZEPAM [Interacting]
     Active Substance: CLONAZEPAM
     Indication: Insomnia
     Dosage: 1 DF, DAILY
     Route: 030
  3. QUETIAPINE [Interacting]
     Active Substance: QUETIAPINE
     Indication: Insomnia
     Dosage: DAILY DOSE: 25 MILLIGRAM
     Route: 048
  4. QUETIAPINE [Interacting]
     Active Substance: QUETIAPINE
     Indication: Insomnia
     Dosage: DAILY DOSE: 25 MILLIGRAM
  5. ABILIFY MAINTENA [Interacting]
     Active Substance: ARIPIPRAZOLE
     Indication: Product used for unknown indication
     Dosage: 2 G (KIT)
     Route: 030
  6. ABILIFY MAINTENA [Interacting]
     Active Substance: ARIPIPRAZOLE
     Indication: Product used for unknown indication
  7. ABILIFY MAINTENA [Interacting]
     Active Substance: ARIPIPRAZOLE
     Indication: Product used for unknown indication
  8. CYMBALTA [Interacting]
     Active Substance: DULOXETINE HYDROCHLORIDE
     Indication: Insomnia
     Dosage: 30 MG
  9. CYMBALTA [Interacting]
     Active Substance: DULOXETINE HYDROCHLORIDE
     Indication: Insomnia
     Dosage: 60 MG
  10. CYMBALTA [Interacting]
     Active Substance: DULOXETINE HYDROCHLORIDE
     Indication: Insomnia
     Dosage: 90 MG

REACTIONS (7)
  - Abnormal behaviour [Unknown]
  - Drug interaction [Unknown]
  - Mood altered [Unknown]
  - Stubbornness [Unknown]
  - Thinking abnormal [Unknown]
  - Product use issue [Unknown]
  - Product use in unapproved indication [Unknown]
